FAERS Safety Report 5744891-0 (Version None)
Quarter: 2008Q2

REPORT INFORMATION
  Report Type: 
  Country: None (occurrence: None)
  Receive Date: 20080516
  Receipt Date: 20080430
  Transmission Date: 20081010
  Serious: Yes (Other)
  Sender: FDA-Public Use
  Company Number: 08-000731

PATIENT

DRUGS (2)
  1. TACLONEX [Suspect]
     Indication: PSORIASIS
     Dosage: 50 MCG/0.5MG,QD, TOPICAL
     Route: 061
  2. DOVONEX [Suspect]
     Indication: PSORIASIS
     Dosage: 50MCG/G, BID, TOPICAL
     Route: 061

REACTIONS (8)
  - ACUTE LEUKAEMIA [None]
  - BURNING SENSATION [None]
  - CONDITION AGGRAVATED [None]
  - DRUG INEFFECTIVE [None]
  - ERYTHEMA [None]
  - MYOCARDIAL INFARCTION [None]
  - PRURITUS [None]
  - PSORIASIS [None]
